FAERS Safety Report 26180148 (Version 1)
Quarter: 2025Q4

REPORT INFORMATION
  Report Type: Spontaneous
  Country: TH (occurrence: TH)
  Receive Date: 20251219
  Receipt Date: 20251219
  Transmission Date: 20260118
  Serious: Yes (Life-Threatening, Other)
  Sender: Kenvue
  Company Number: TH-KENVUE-20251205676

PATIENT
  Age: 7 Year

DRUGS (1)
  1. TYLENOL 8HR [Suspect]
     Active Substance: ACETAMINOPHEN
     Indication: Product used for unknown indication
     Dosage: 400 MILLIGRAM, SINGLE (1 TIMES USED)
     Route: 061

REACTIONS (2)
  - Anaphylactic reaction [Recovered/Resolved]
  - Medication error [Unknown]
